FAERS Safety Report 17057729 (Version 1)
Quarter: 2019Q4

REPORT INFORMATION
  Report Type: Spontaneous
  Country: US (occurrence: US)
  Receive Date: 20191121
  Receipt Date: 20191121
  Transmission Date: 20200122
  Serious: No
  Sender: FDA-Public Use
  Company Number: US-JNJFOC-20191126190

PATIENT
  Sex: Female

DRUGS (1)
  1. LEVAQUIN [Suspect]
     Active Substance: LEVOFLOXACIN
     Indication: BACTERIAL ALLERGY
     Route: 042

REACTIONS (4)
  - Adverse drug reaction [Unknown]
  - Impaired healing [Unknown]
  - Rehabilitation therapy [Unknown]
  - Hypersensitivity [Unknown]
